FAERS Safety Report 8400432-0 (Version None)
Quarter: 2012Q2

REPORT INFORMATION
  Report Type: 
  Country: None (occurrence: None)
  Receive Date: 20120531
  Receipt Date: 20120522
  Transmission Date: 20120825
  Serious: No
  Sender: FDA-Public Use
  Company Number: US-B.I. PHARMACEUTICALS,INC./RIDGEFIELD-2012-BP-10034BP

PATIENT
  Sex: Female
  Weight: 136.98 kg

DRUGS (1)
  1. SPIRIVA [Suspect]
     Indication: CHRONIC OBSTRUCTIVE PULMONARY DISEASE
     Dates: start: 20120416, end: 20120430

REACTIONS (3)
  - ERYTHEMA [None]
  - NASAL CONGESTION [None]
  - RHINORRHOEA [None]
